FAERS Safety Report 5471828-4 (Version None)
Quarter: 2007Q3

REPORT INFORMATION
  Report Type: 
  Country: None (occurrence: None)
  Receive Date: 20070928
  Receipt Date: 20070628
  Transmission Date: 20080115
  Serious: No
  Sender: FDA-Public Use
  Company Number: US-BRISTOL-MYERS SQUIBB COMPANY-13814629

PATIENT
  Age: 39 Year
  Sex: Female

DRUGS (8)
  1. DEFINITY [Suspect]
     Dosage: IN 8.5 CC OF PRESERVATIVE FREE SALINE
     Route: 042
  2. CARDIOLITE INJ [Suspect]
  3. ASPIRIN [Concomitant]
  4. DIOVAN [Concomitant]
  5. PRILOSEC [Concomitant]
  6. VYTORIN [Concomitant]
  7. LANTUS [Concomitant]
  8. NOVOLOG [Concomitant]

REACTIONS (3)
  - ARTHRALGIA [None]
  - BACK PAIN [None]
  - PAIN IN EXTREMITY [None]
